FAERS Safety Report 18780324 (Version 5)
Quarter: 2021Q2

REPORT INFORMATION
  Report Type: Report from Study
  Country: ES (occurrence: ES)
  Receive Date: 20210125
  Receipt Date: 20210623
  Transmission Date: 20210717
  Serious: Yes (Death, Hospitalization)
  Sender: FDA-Public Use
  Company Number: ES-ROCHE-2741525

PATIENT
  Age: 50 Year
  Sex: Male
  Weight: 57 kg

DRUGS (5)
  1. KREON [Concomitant]
     Active Substance: PANCRELIPASE
     Route: 048
     Dates: start: 2020, end: 20210120
  2. OMEPRAZOLE. [Concomitant]
     Active Substance: OMEPRAZOLE
     Route: 048
     Dates: start: 2020, end: 20210120
  3. CODEINE [Concomitant]
     Active Substance: CODEINE
     Route: 048
     Dates: start: 2020, end: 20210120
  4. CABOZANTINIB [Suspect]
     Active Substance: CABOZANTINIB
     Indication: NEUROENDOCRINE TUMOUR
     Dosage: CYCLE BEFORE SAE ONSET ON 09/DEC/2020, 27/DEC/2020
     Route: 048
     Dates: start: 20201109
  5. ATEZOLIZUMAB. [Suspect]
     Active Substance: ATEZOLIZUMAB
     Indication: NEUROENDOCRINE TUMOUR
     Dosage: CYCLE BEFORE SAE ONSET ON 09/DEC/2020
     Route: 041
     Dates: start: 20201109

REACTIONS (4)
  - Abdominal pain [Recovered/Resolved with Sequelae]
  - Abdominal pain [Fatal]
  - Hyperthyroidism [Not Recovered/Not Resolved]
  - Pancreatitis [Fatal]

NARRATIVE: CASE EVENT DATE: 20201130
